FAERS Safety Report 25307313 (Version 2)
Quarter: 2025Q2

REPORT INFORMATION
  Report Type: Spontaneous
  Country: US (occurrence: US)
  Receive Date: 20250513
  Receipt Date: 20250612
  Transmission Date: 20250716
  Serious: No
  Sender: PFIZER
  Company Number: US-PFIZER INC-202500098327

PATIENT
  Age: 4 Year
  Sex: Male

DRUGS (1)
  1. SOMATROPIN [Suspect]
     Active Substance: SOMATROPIN
     Indication: Short stature
     Dosage: 0.4 MG, DAILY

REACTIONS (2)
  - Erythema of eyelid [Unknown]
  - Swelling of eyelid [Unknown]
